FAERS Safety Report 6299365-8 (Version None)
Quarter: 2009Q3

REPORT INFORMATION
  Report Type: 
  Country: None (occurrence: None)
  Receive Date: 20090806
  Receipt Date: 20090728
  Transmission Date: 20100115
  Serious: Yes (Other)
  Sender: FDA-Public Use
  Company Number: GB-ROCHE-646918

PATIENT
  Age: 42 Year
  Sex: Male

DRUGS (2)
  1. XELODA [Suspect]
     Indication: RECTAL CANCER
     Route: 065
  2. CHEMOTHERAPY [Suspect]
     Indication: RECTAL CANCER
     Route: 065

REACTIONS (1)
  - PENILE INFECTION [None]
